FAERS Safety Report 4496898-1 (Version None)
Quarter: 2004Q4

REPORT INFORMATION
  Report Type: 
  Country: None (occurrence: None)
  Receive Date: 20040928
  Receipt Date: 20040803
  Transmission Date: 20050328
  Serious: No
  Sender: FDA-Public Use
  Company Number: 04P-163-0253254-00

PATIENT
  Sex: Female
  Weight: 59.8748 kg

DRUGS (20)
  1. HUMIRA [Suspect]
     Indication: RHEUMATOID ARTHRITIS
     Dosage: 40 MG 1 IN 2 WK, SUBCUTANEOUS
     Route: 058
     Dates: start: 20040308, end: 20040405
  2. HUMIRA [Suspect]
     Indication: RHEUMATOID ARTHRITIS
     Dosage: 40 MG 1 IN 2 WK, SUBCUTANEOUS
     Route: 058
     Dates: start: 20040501
  3. ATORVASTATIN CALCIUM [Concomitant]
  4. FUROSEMIDE [Concomitant]
  5. LANSOPRAZOLE [Concomitant]
  6. ACETYLSALICYLIC ACID [Concomitant]
  7. PHENOBARBITAL TAB [Concomitant]
  8. LISINOPRIL [Concomitant]
  9. FOLIC ACID [Concomitant]
  10. FLUOXETINE HYDROCHLORIDE [Concomitant]
  11. HYDROXYCHLOROQUINE PHOSPHATE [Concomitant]
  12. RISEDRONATE SODIUM [Concomitant]
  13. CALCIUM CARBONATE [Concomitant]
  14. GABAPENTIN [Concomitant]
  15. CENTRUM [Concomitant]
  16. RIMEXOLONE [Concomitant]
  17. CELLUVISIC [Concomitant]
  18. PARACETAMOL [Concomitant]
  19. ELADIL OINTMENT [Concomitant]
  20. POTASSIUM CHLORIDE [Concomitant]

REACTIONS (12)
  - BACK PAIN [None]
  - COUGH [None]
  - ECZEMA [None]
  - INJECTION SITE PAIN [None]
  - NASOPHARYNGITIS [None]
  - NECK PAIN [None]
  - PAIN EXACERBATED [None]
  - PRURITUS [None]
  - RHINORRHOEA [None]
  - SNEEZING [None]
  - TINEA PEDIS [None]
  - WEIGHT INCREASED [None]
